FAERS Safety Report 8781521 (Version 1)
Quarter: 2012Q4

REPORT INFORMATION
  Report Type: 
  Country: US (occurrence: US)
  Receive Date: 20120913
  Receipt Date: 20120913
  Transmission Date: 20130627
  Serious: Yes (Other)
  Sender: FDA-Public Use
  Company Number: US-MYLANLABS-2012S1018486

PATIENT
  Age: 63 Year
  Sex: Male
  Weight: 83.92 kg

DRUGS (5)
  1. TACROLIMUS CAPSULES [Suspect]
     Indication: STEM CELL TRANSPLANT
     Route: 048
     Dates: start: 201112
  2. LANTUS [Concomitant]
     Indication: DIABETES MELLITUS
     Route: 058
  3. ACYCLOVIR [Concomitant]
     Route: 048
  4. VORICONAZOLE [Concomitant]
     Route: 048
  5. HYDROCODONE [Concomitant]
     Indication: PAIN
     Route: 048

REACTIONS (8)
  - Drug ineffective for unapproved indication [Recovering/Resolving]
  - Blood stem cell transplant failure [Not Recovered/Not Resolved]
  - Immunosuppressant drug level decreased [Recovered/Resolved]
  - Haematology test abnormal [Not Recovered/Not Resolved]
  - Leukopenia [Recovered/Resolved]
  - Thrombocytopenia [Recovered/Resolved]
  - Anaemia [Recovered/Resolved]
  - Product quality issue [None]
